FAERS Safety Report 12396466 (Version 1)
Quarter: 2016Q2

REPORT INFORMATION
  Report Type: Spontaneous
  Country: US (occurrence: None)
  Receive Date: 20160523
  Receipt Date: 20160523
  Transmission Date: 20160815
  Serious: Yes (Death)
  Sender: FDA-Public Use
  Company Number: None

PATIENT
  Age: 62 Year
  Sex: Male
  Weight: 67.59 kg

DRUGS (4)
  1. OPDIVO [Suspect]
     Active Substance: NIVOLUMAB
     Indication: METASTATIC RENAL CELL CARCINOMA
     Route: 042
     Dates: start: 20160325, end: 20160426
  2. MULTIVITAMIN [Concomitant]
     Active Substance: VITAMINS
  3. IRON [Concomitant]
     Active Substance: IRON
  4. VITAMIN D [Concomitant]
     Active Substance: CHOLECALCIFEROL

REACTIONS (13)
  - Dry mouth [None]
  - Decreased appetite [None]
  - Pleural effusion [None]
  - Metastases to liver [None]
  - Confusional state [None]
  - Metastases to spleen [None]
  - Asthenia [None]
  - Metastases to central nervous system [None]
  - General physical health deterioration [None]
  - Oedema [None]
  - No therapeutic response [None]
  - Malignant neoplasm progression [None]
  - Metastases to lung [None]

NARRATIVE: CASE EVENT DATE: 20160504
